FAERS Safety Report 4826786-X (Version None)
Quarter: 2005Q4

REPORT INFORMATION
  Report Type: 
  Country: None (occurrence: None)
  Receive Date: 20051111
  Receipt Date: 20051111
  Transmission Date: 20060501
  Serious: Yes (Other)
  Sender: FDA-Public Use
  Company Number: None

PATIENT
  Sex: Female
  Weight: 70.5 kg

DRUGS (3)
  1. CYCLOPHOSPHAMIDE [Suspect]
     Indication: BREAST CANCER
     Dosage: SEE IMAGE
     Dates: start: 20050912, end: 20050912
  2. TAXOTERE [Suspect]
     Dosage: SEE IMAGE
     Dates: start: 20050912, end: 20050912
  3. DOXORUBICIN HYDROCHLORIDE [Suspect]
     Dosage: SEE IMAGE
     Dates: start: 20050912, end: 20050912

REACTIONS (3)
  - FAMILY STRESS [None]
  - MENTAL DISORDER [None]
  - OVERDOSE [None]
